FAERS Safety Report 4733553-4 (Version None)
Quarter: 2005Q3

REPORT INFORMATION
  Report Type: 
  Country: None (occurrence: None)
  Receive Date: 20050803
  Receipt Date: 20050706
  Transmission Date: 20060218
  Serious: Yes (Hospitalization)
  Sender: FDA-Public Use
  Company Number: PHBS2005JP09723

PATIENT
  Age: 76 Year
  Sex: Female

DRUGS (6)
  1. DIOVAN [Suspect]
     Indication: HYPERTENSION
     Dosage: 1 DF/DAY
     Route: 048
     Dates: end: 20050704
  2. ASPIRIN [Concomitant]
     Dosage: 1 DF/DAY
     Route: 048
     Dates: end: 20050704
  3. ADALAT [Concomitant]
     Dosage: 1 DF/DAY
     Route: 048
     Dates: end: 20050704
  4. ALFAROL [Concomitant]
     Dosage: 1 DF/DAY
     Route: 048
     Dates: end: 20050704
  5. FUOIBAN [Concomitant]
     Dosage: 2 DF/DAY
     Route: 048
     Dates: end: 20050704
  6. GASTER [Concomitant]
     Dosage: 2 DF/DAY
     Route: 048
     Dates: end: 20050704

REACTIONS (6)
  - BACK PAIN [None]
  - BLOOD AMYLASE INCREASED [None]
  - CHOLELITHIASIS [None]
  - NAUSEA [None]
  - PANCREATITIS ACUTE [None]
  - VOMITING [None]
